FAERS Safety Report 4437189-4 (Version None)
Quarter: 2004Q3

REPORT INFORMATION
  Report Type: 
  Country: None (occurrence: None)
  Receive Date: 20040726
  Receipt Date: 20040512
  Transmission Date: 20050211
  Serious: No
  Sender: FDA-Public Use
  Company Number: USA040360879

PATIENT
  Age: 74 Year
  Sex: Female
  Weight: 65 kg

DRUGS (5)
  1. FORTEO [Suspect]
     Indication: BONE DENSITY DECREASED
     Dosage: 20 UG/ 1 DAY
     Dates: start: 20030815
  2. VIOXX [Concomitant]
  3. CALCIUM [Concomitant]
  4. MULTIVITAMIN [Concomitant]
  5. MINERALS NOS [Concomitant]

REACTIONS (1)
  - NAIL DISORDER [None]
